FAERS Safety Report 6799503-4 (Version None)
Quarter: 2010Q2

REPORT INFORMATION
  Report Type: 
  Country: None (occurrence: None)
  Receive Date: 20100623
  Receipt Date: 20100615
  Transmission Date: 20101027
  Serious: Yes (Other)
  Sender: FDA-Public Use
  Company Number: 2010SP034538

PATIENT
  Age: 25 Year
  Sex: Female

DRUGS (1)
  1. NUVARING 15 MCG/120 MCG/ 24 HEURES, SYSTEME DE DIFFUSION VAGINAL (NUVA [Suspect]
     Indication: CONTRACEPTION
     Dosage: 1 DF;VAG
     Route: 067
     Dates: start: 20080101

REACTIONS (2)
  - AMENORRHOEA [None]
  - FOOT FRACTURE [None]
